FAERS Safety Report 10524155 (Version 2)
Quarter: 2014Q4

REPORT INFORMATION
  Report Type: Spontaneous
  Country: US (occurrence: US)
  Receive Date: 20141017
  Receipt Date: 20141205
  Transmission Date: 20150528
  Serious: Yes (Hospitalization)
  Sender: FDA-Public Use
  Company Number: US-JNJFOC-20141008120

PATIENT
  Sex: Male

DRUGS (2)
  1. DIABETES MEDICATIONS [Concomitant]
     Active Substance: UNSPECIFIED INGREDIENT
  2. INVOKANA [Suspect]
     Active Substance: CANAGLIFLOZIN
     Indication: TYPE 2 DIABETES MELLITUS
     Dates: start: 201407

REACTIONS (2)
  - Renal failure [Unknown]
  - Circulatory collapse [Unknown]

NARRATIVE: CASE EVENT DATE: 201409
